FAERS Safety Report 12277163 (Version 6)
Quarter: 2016Q2

REPORT INFORMATION
  Report Type: Report from Study
  Country: BE (occurrence: BE)
  Receive Date: 20160418
  Receipt Date: 20160518
  Transmission Date: 20160815
  Serious: Yes (Death, Hospitalization, Other)
  Sender: FDA-Public Use
  Company Number: BE-ABBVIE-16P-013-1604468-00

PATIENT
  Age: 76 Year
  Sex: Male

DRUGS (9)
  1. DUODOPA [Suspect]
     Active Substance: CARBIDOPA\LEVODOPA
     Dosage: DOSES CONTINUOUSLY MONITORED AND ADAPTED
     Route: 050
     Dates: start: 20140221, end: 20151209
  2. DUODOPA [Suspect]
     Active Substance: CARBIDOPA\LEVODOPA
     Dosage: AM=2.4ML?CD=5.3ML/HR DURING 16HRS ?ED=4ML?ND=4.8ML/HR DURING 8HRS
     Route: 050
     Dates: start: 20151209, end: 20160411
  3. DUODOPA [Suspect]
     Active Substance: CARBIDOPA\LEVODOPA
     Dosage: AM 2.6 ML;CD( 5.4 ML (AM) 5.6 ML (PM))/H IN 16 HRS;ND5 ML/H IN 8 HRS;ED 4 ML;
     Route: 050
     Dates: start: 20160416
  4. STALEVO [Concomitant]
     Active Substance: CARBIDOPA\ENTACAPONE\LEVODOPA
     Indication: PRODUCT USED FOR UNKNOWN INDICATION
     Dosage: FORM STRENGTH: 150MG/37.5MG/200MG
  5. STALEVO [Concomitant]
     Active Substance: CARBIDOPA\ENTACAPONE\LEVODOPA
     Dosage: FORM STRENGTH: 150MG/37.5MG/200MG ; UNIT DOSE : 1 TABLET, EMERGENCY MEDICATION
  6. DUODOPA [Suspect]
     Active Substance: CARBIDOPA\LEVODOPA
     Indication: PARKINSON^S DISEASE
     Dosage: AM=5ML?CD=5.7ML/HR DURING 16HRS ?ED=4ML?ND=3.4ML/HR DURING 8HRS
     Route: 050
     Dates: start: 20140217, end: 20140221
  7. MIRAPEXIN [Concomitant]
     Active Substance: PRAMIPEXOLE
     Indication: PARKINSON^S DISEASE
     Route: 048
     Dates: start: 2008
  8. AZILECT [Concomitant]
     Active Substance: RASAGILINE MESYLATE
     Indication: PARKINSON^S DISEASE
     Route: 048
     Dates: start: 2008
  9. DUODOPA [Suspect]
     Active Substance: CARBIDOPA\LEVODOPA
     Dosage: AM=2.4ML?CD=5.4ML(AM) - 5.6ML(PM)/HR DURING 16HRS?ED=4ML?ND=5ML/HR DURING 8HRS
     Route: 050
     Dates: start: 20160411, end: 20160416

REACTIONS (11)
  - C-reactive protein increased [Unknown]
  - Abasia [Unknown]
  - Klebsiella infection [Unknown]
  - On and off phenomenon [Unknown]
  - Infection [Unknown]
  - Tremor [Unknown]
  - Pneumonia [Fatal]
  - Bedridden [Unknown]
  - Dyskinesia [Unknown]
  - Pyrexia [Unknown]
  - Confusional state [Unknown]

NARRATIVE: CASE EVENT DATE: 2016
